FAERS Safety Report 4821685-1 (Version None)
Quarter: 2005Q4

REPORT INFORMATION
  Report Type: 
  Country: None (occurrence: None)
  Receive Date: 20051107
  Receipt Date: 20051028
  Transmission Date: 20060501
  Serious: Yes (Other)
  Sender: FDA-Public Use
  Company Number: PHNU2005DE03607

PATIENT
  Age: 69 Year
  Sex: Male
  Weight: 100 kg

DRUGS (4)
  1. EMSELEX EXTENDED RELEASE [Suspect]
     Indication: HYPERTONIC BLADDER
     Dosage: 7.5 MG, QD
     Route: 048
     Dates: start: 20050420, end: 20050423
  2. DIOVAN HCT [Concomitant]
     Indication: BLOOD PRESSURE INCREASED
     Dosage: 1 DF, QD
     Route: 048
     Dates: start: 20050307
  3. GLUCOPHAGE [Concomitant]
     Indication: DIABETES MELLITUS
     Dosage: 2000 MG, QD
     Route: 048
     Dates: start: 20030410
  4. LANTUS [Concomitant]
     Indication: DIABETES MELLITUS
     Dosage: 14 IU, QD
     Route: 048
     Dates: start: 20040922

REACTIONS (2)
  - BLOOD PRESSURE INCREASED [None]
  - HYPERTENSIVE CRISIS [None]
